FAERS Safety Report 4348856-5 (Version None)
Quarter: 2004Q2

REPORT INFORMATION
  Report Type: 
  Country: None (occurrence: None)
  Receive Date: 20040423
  Receipt Date: 20040409
  Transmission Date: 20050107
  Serious: Yes (Disabling)
  Sender: FDA-Public Use
  Company Number: 2004EU000760

PATIENT
  Age: 57 Year
  Sex: Female

DRUGS (5)
  1. PROGRAF [Suspect]
     Indication: RENAL TRANSPLANT
  2. PREDNISONE [Concomitant]
  3. CALCIUM (CALCIUM) [Concomitant]
  4. VITAMIN D [Concomitant]
  5. AZATHIOPRINE [Concomitant]

REACTIONS (8)
  - ARTHRALGIA [None]
  - BLOOD ALKALINE PHOSPHATASE INCREASED [None]
  - BLOOD PARATHYROID HORMONE INCREASED [None]
  - BONE DISORDER [None]
  - BONE MARROW OEDEMA [None]
  - BONE SCAN NORMAL [None]
  - DIFFICULTY IN WALKING [None]
  - HYPOPHOSPHATAEMIA [None]
